FAERS Safety Report 17534499 (Version 1)
Quarter: 2020Q1

REPORT INFORMATION
  Report Type: Spontaneous
  Country: FR (occurrence: FR)
  Receive Date: 20200312
  Receipt Date: 20200312
  Transmission Date: 20200409
  Serious: Yes (Hospitalization, Disabling)
  Sender: FDA-Public Use
  Company Number: FR-MYLANLABS-2020M1027063

PATIENT
  Age: 82 Year
  Sex: Female
  Weight: 45 kg

DRUGS (4)
  1. FLEXEA [Concomitant]
     Indication: OSTEOARTHRITIS
     Dosage: 1250 MILLIGRAM
     Route: 048
     Dates: end: 201804
  2. SPIRONOLACTONE. [Suspect]
     Active Substance: SPIRONOLACTONE
     Indication: OEDEMA
     Dosage: 25 MILLIGRAM, QD
     Route: 048
     Dates: start: 201804, end: 201804
  3. ALTIZIDE [Suspect]
     Active Substance: ALTHIAZIDE
     Indication: OEDEMA
     Dosage: 15 MILLIGRAM, QD
     Route: 048
     Dates: start: 201804, end: 201804
  4. PARIET [Concomitant]
     Active Substance: RABEPRAZOLE SODIUM
     Indication: PRODUCT USED FOR UNKNOWN INDICATION
     Dosage: 10 MILLIGRAM, QD
     Route: 048
     Dates: end: 201804

REACTIONS (3)
  - Asthenia [Recovered/Resolved]
  - Hyponatraemia [Recovered/Resolved]
  - Memory impairment [Recovered/Resolved with Sequelae]

NARRATIVE: CASE EVENT DATE: 2018
